FAERS Safety Report 19068334 (Version 1)
Quarter: 2021Q1

REPORT INFORMATION
  Report Type: Spontaneous
  Country: DE (occurrence: DE)
  Receive Date: 20210329
  Receipt Date: 20210329
  Transmission Date: 20210420
  Serious: Yes (Hospitalization, Other)
  Sender: FDA-Public Use
  Company Number: DE-PFIZER INC-2021287322

PATIENT
  Age: 74 Year
  Sex: Male

DRUGS (9)
  1. UNACID (AMPICILLIN SODIUM/SULBACTAM SODIUM) [Suspect]
     Active Substance: AMPICILLIN SODIUM\SULBACTAM SODIUM
     Dosage: UNK
  2. MUTAFLOR [Concomitant]
     Active Substance: ESCHERICHIA COLI
     Dosage: UNK UNK, 2X/DAY (1?0?1?0)
  3. LANTUS [Concomitant]
     Active Substance: INSULIN GLARGINE
     Dosage: 5 IU, 1X/DAY (0?0?1?0)
     Route: 058
  4. HUMALOG [Concomitant]
     Active Substance: INSULIN LISPRO
     Dosage: UNK
     Route: 058
  5. LEVOTHYROXINE SODIUM. [Concomitant]
     Active Substance: LEVOTHYROXINE SODIUM
     Dosage: 50 UG, 1X/DAY (1?0?0?0)
  6. METOPROLOL. [Concomitant]
     Active Substance: METOPROLOL
     Dosage: UNK
  7. PIPERACILLIN/TAZOBACTAM [Suspect]
     Active Substance: PIPERACILLIN SODIUM\TAZOBACTAM SODIUM
     Dosage: UNK
  8. APIXABAN [Concomitant]
     Active Substance: APIXABAN
     Dosage: 2X/DAY (1?0?1?0)
  9. FUROSEMID [Concomitant]
     Active Substance: FUROSEMIDE
     Dosage: 40 MG, 2X/DAY (1?1?0?0)

REACTIONS (3)
  - Diarrhoea [Unknown]
  - Asthenia [Unknown]
  - Renal impairment [Unknown]
